FAERS Safety Report 7621337-9 (Version None)
Quarter: 2011Q3

REPORT INFORMATION
  Report Type: 
  Country: None (occurrence: None)
  Receive Date: 20110719
  Receipt Date: 20110707
  Transmission Date: 20111222
  Serious: Yes (Other)
  Sender: FDA-Public Use
  Company Number: US-BAYER-2011-041939

PATIENT
  Age: 40 Year
  Sex: Female

DRUGS (6)
  1. INTERFERON BETA-1B [Suspect]
     Indication: MULTIPLE SCLEROSIS
     Dosage: 2 MIU, QOD
     Route: 058
     Dates: start: 20110510
  2. NORCO [Concomitant]
  3. CYMBALTA [Concomitant]
  4. ELAVIL [Concomitant]
  5. CORTICOSTEROIDS [Concomitant]
  6. LYRICA [Concomitant]

REACTIONS (7)
  - ABDOMINAL DISTENSION [None]
  - ASTHENIA [None]
  - HYPERHIDROSIS [None]
  - PAIN IN EXTREMITY [None]
  - DYSPNOEA [None]
  - INJECTION SITE SWELLING [None]
  - MULTIPLE SCLEROSIS [None]
